FAERS Safety Report 21762803 (Version 1)
Quarter: 2022Q4

REPORT INFORMATION
  Report Type: Report from Study
  Country: US (occurrence: US)
  Receive Date: 20221221
  Receipt Date: 20221221
  Transmission Date: 20230113
  Serious: No
  Sender: FDA-Public Use
  Company Number: US-ABBVIE-4207037

PATIENT
  Age: 64 Year
  Sex: Female

DRUGS (1)
  1. HUMIRA [Suspect]
     Active Substance: ADALIMUMAB
     Indication: Colitis ulcerative
     Dosage: ONSET DATE FOR EVENT PAINFUL WITH EACH INJECTION WAS 2022 AND CESSATION DATES FOR ?PAINFUL WITH E...
     Route: 058
     Dates: start: 202205

REACTIONS (2)
  - Colitis ulcerative [Recovered/Resolved]
  - Injection site pain [Recovered/Resolved]

NARRATIVE: CASE EVENT DATE: 20220601
